FAERS Safety Report 5843721-6 (Version None)
Quarter: 2008Q3

REPORT INFORMATION
  Report Type: 
  Country: None (occurrence: None)
  Receive Date: 20080813
  Receipt Date: 20080515
  Transmission Date: 20090109
  Serious: Yes (Life-Threatening, Hospitalization)
  Sender: FDA-Public Use
  Company Number: US-BRISTOL-MYERS SQUIBB COMPANY-14171664

PATIENT
  Age: 72 Year
  Sex: Female

DRUGS (8)
  1. IXABEPILONE [Suspect]
     Indication: PANCREATIC CARCINOMA
     Route: 042
     Dates: start: 20080215, end: 20080215
  2. DECADRON SRC [Concomitant]
     Indication: PREMEDICATION
     Dates: start: 20080215
  3. BENADRYL [Concomitant]
     Indication: PREMEDICATION
     Dates: start: 20080215
  4. PEPCID [Concomitant]
     Indication: PREMEDICATION
     Dates: start: 20080215
  5. ONDANSETRON [Concomitant]
     Indication: PREMEDICATION
     Route: 042
  6. DEXAMETHASONE [Concomitant]
     Indication: PREMEDICATION
     Route: 042
  7. FAMOTIDINE [Concomitant]
     Indication: PREMEDICATION
     Route: 042
  8. DIPHENHYDRAMINE HCL [Concomitant]
     Indication: PREMEDICATION
     Route: 042

REACTIONS (3)
  - HYPOTENSION [None]
  - LARYNGOSPASM [None]
  - RESPIRATORY ARREST [None]
